FAERS Safety Report 12807854 (Version 3)
Quarter: 2019Q1

REPORT INFORMATION
  Report Type: Spontaneous
  Country: DE (occurrence: DE)
  Receive Date: 20161004
  Receipt Date: 20190319
  Transmission Date: 20190417
  Serious: Yes (Other)
  Sender: FDA-Public Use
  Company Number: PHHY2016DE133282

PATIENT
  Age: 9 Year
  Sex: Female

DRUGS (3)
  1. BIOTIN [Suspect]
     Active Substance: BIOTIN
     Indication: BASAL GANGLION DEGENERATION
     Dosage: 10 MG/KG, QD
     Route: 065
  2. BIOTIN [Suspect]
     Active Substance: BIOTIN
     Indication: METABOLIC DISORDER
  3. THIAMINE. [Concomitant]
     Active Substance: THIAMINE
     Indication: PRODUCT USED FOR UNKNOWN INDICATION
     Dosage: UNK
     Route: 065

REACTIONS (6)
  - Product use in unapproved indication [Unknown]
  - Basedow^s disease [Recovered/Resolved]
  - Off label use [Unknown]
  - Laboratory test interference [Recovered/Resolved]
  - Overdose [Recovered/Resolved]
  - Drug interaction [Recovered/Resolved]
